FAERS Safety Report 13210130 (Version 1)
Quarter: 2017Q1

REPORT INFORMATION
  Report Type: Spontaneous
  Country: CA (occurrence: CA)
  Receive Date: 20170210
  Receipt Date: 20170210
  Transmission Date: 20170428
  Serious: Yes (Hospitalization)
  Sender: FDA-Public Use
  Company Number: CA-TEVA-737949ACC

PATIENT
  Age: 17 Year
  Sex: Male
  Weight: 66 kg

DRUGS (14)
  1. L-ASPARAGINASE [Concomitant]
     Active Substance: ASPARAGINASE
  2. ZINECARD [Concomitant]
     Active Substance: DEXRAZOXANE HYDROCHLORIDE
  3. ADRIBLASTINA - 50 MG/25 ML SOLUZIONE INIETTABILE PER USO ENDOVENOSO [Concomitant]
  4. METHOTREXATE. [Concomitant]
     Active Substance: METHOTREXATE
  5. PREDNISONE. [Suspect]
     Active Substance: PREDNISONE
     Dosage: 75 MILLIGRAM DAILY;
     Route: 048
  6. HYDROCORTISONE. [Suspect]
     Active Substance: HYDROCORTISONE
     Indication: ACUTE LYMPHOCYTIC LEUKAEMIA
     Route: 037
  7. RANITIDINE - 150 [Concomitant]
  8. VINCRISTINE SULFATE. [Concomitant]
     Active Substance: VINCRISTINE SULFATE
  9. METHYLPREDNISOLONE SODIUM SUCCINATE FOR INJECTION [Suspect]
     Active Substance: METHYLPREDNISOLONE SODIUM SUCCINATE
     Indication: ACUTE LYMPHOCYTIC LEUKAEMIA
     Route: 042
  10. DIMENHYDRINATE. [Concomitant]
     Active Substance: DIMENHYDRINATE
  11. DECADRON [Suspect]
     Active Substance: DEXAMETHASONE
     Indication: ACUTE LYMPHOCYTIC LEUKAEMIA
     Dosage: 10 MILLIGRAM DAILY;
     Route: 048
  12. CYTARABINE INJECTION [Concomitant]
     Active Substance: CYTARABINE
  13. NYSTATIN. [Concomitant]
     Active Substance: NYSTATIN
  14. POLYETHYLENE GLYCOL [Concomitant]
     Active Substance: POLYETHYLENE GLYCOLS

REACTIONS (6)
  - Hallucination, auditory [Unknown]
  - Incoherent [Unknown]
  - Vitamin B12 deficiency [Unknown]
  - Mania [Unknown]
  - Psychotic disorder [Unknown]
  - Confusional state [Unknown]
